FAERS Safety Report 4680067-6 (Version None)
Quarter: 2005Q2

REPORT INFORMATION
  Report Type: 
  Country: None (occurrence: None)
  Receive Date: 20050531
  Receipt Date: 20050519
  Transmission Date: 20051028
  Serious: Yes (Other)
  Sender: FDA-Public Use
  Company Number: 2005057339

PATIENT
  Sex: Female

DRUGS (2)
  1. BEXTRA [Suspect]
     Indication: MUSCULOSKELETAL PAIN
     Dosage: ( 1 IN 1 D), ORAL
     Route: 048
     Dates: start: 20050201, end: 20050404
  2. NORVASC [Concomitant]

REACTIONS (2)
  - ALOPECIA [None]
  - RASH PRURITIC [None]
